FAERS Safety Report 5266518-7 (Version None)
Quarter: 2007Q1

REPORT INFORMATION
  Report Type: 
  Country: None (occurrence: None)
  Receive Date: 20070315
  Receipt Date: 20070305
  Transmission Date: 20070707
  Serious: Yes (Hospitalization)
  Sender: FDA-Public Use
  Company Number: BE-ELI_LILLY_AND_COMPANY-BE200703000810

PATIENT
  Age: 73 Year
  Sex: Female

DRUGS (3)
  1. FORTEO [Suspect]
     Indication: OSTEOPOROSIS
     Dosage: 20 UG, DAILY (1/D)
     Dates: start: 20061010
  2. MEDROL [Concomitant]
     Indication: TEMPORAL ARTERITIS
  3. PREDNISOLONE [Concomitant]
     Indication: TEMPORAL ARTERITIS

REACTIONS (1)
  - HYPERTENSIVE CRISIS [None]
